FAERS Safety Report 10515350 (Version 1)
Quarter: 2014Q4

REPORT INFORMATION
  Report Type: Spontaneous
  Country: IT (occurrence: IT)
  Receive Date: 20141014
  Receipt Date: 20141014
  Transmission Date: 20150528
  Serious: Yes (Other)
  Sender: FDA-Public Use
  Company Number: IT-AMGEN-ITASP2014077973

PATIENT
  Age: 82 Year
  Sex: Female

DRUGS (5)
  1. TOTALIP [Concomitant]
     Active Substance: ATORVASTATIN
  2. DIBASE [Concomitant]
     Active Substance: CHOLECALCIFEROL
     Dosage: 10000 IU/ML, UNK
     Route: 048
  3. LANSOX [Concomitant]
     Active Substance: LANSOPRAZOLE
  4. CREON [Concomitant]
     Active Substance: PANCRELIPASE AMYLASE\PANCRELIPASE LIPASE\PANCRELIPASE PROTEASE
  5. PROLIA [Suspect]
     Active Substance: DENOSUMAB
     Indication: OSTEOPOROSIS
     Dosage: 1 UNIT, CYCLICAL
     Route: 065

REACTIONS (1)
  - Osteonecrosis of jaw [Recovered/Resolved]
